FAERS Safety Report 19020278 (Version 1)
Quarter: 2021Q1

REPORT INFORMATION
  Report Type: Spontaneous
  Country: US (occurrence: US)
  Receive Date: 20210317
  Receipt Date: 20210317
  Transmission Date: 20210420
  Serious: No
  Sender: FDA-Public Use
  Company Number: US-SA-2021SA089988

PATIENT

DRUGS (1)
  1. DUPIXENT [Suspect]
     Active Substance: DUPILUMAB

REACTIONS (3)
  - Pruritus [Unknown]
  - Therapeutic response decreased [Unknown]
  - Dry skin [Unknown]
